FAERS Safety Report 7132504-5 (Version None)
Quarter: 2010Q4

REPORT INFORMATION
  Report Type: 
  Country: None (occurrence: None)
  Receive Date: 20101202
  Receipt Date: 20101126
  Transmission Date: 20110411
  Serious: Yes (Hospitalization)
  Sender: FDA-Public Use
  Company Number: FR-PFIZER INC-2007074594

PATIENT
  Age: 16 Year
  Sex: Female

DRUGS (3)
  1. ZITHROMAX [Suspect]
     Indication: EYE INFECTION TOXOPLASMAL
     Dosage: 250 MG, 1X/DAY
     Route: 048
     Dates: start: 20070627, end: 20070711
  2. LEDERFOLINE [Suspect]
     Indication: EYE INFECTION TOXOPLASMAL
     Dosage: 25 MG, 3X/WEEK
     Route: 048
     Dates: start: 20070627, end: 20100710
  3. MALOCIDE [Suspect]
     Indication: EYE INFECTION TOXOPLASMAL
     Dosage: 50 MG, 1X/DAY
     Route: 048
     Dates: start: 20070627, end: 20070710

REACTIONS (1)
  - GRAND MAL CONVULSION [None]
